FAERS Safety Report 8273662-9 (Version None)
Quarter: 2012Q2

REPORT INFORMATION
  Report Type: 
  Country: None (occurrence: None)
  Receive Date: 20120409
  Receipt Date: 20120409
  Transmission Date: 20120825
  Serious: Yes (Death)
  Sender: FDA-Public Use
  Company Number: None

PATIENT
  Age: 47 Year
  Sex: Female
  Weight: 68.4932 kg

DRUGS (11)
  1. ATAZANAVIR SULFATE (REYATAZ) [Suspect]
     Indication: HIV INFECTION
     Dosage: 300 MG QD ORAL
     Route: 048
     Dates: start: 20090810, end: 20120130
  2. IPRATROPIUM BROMIDE [Concomitant]
  3. HYDROXYZINE HCL [Concomitant]
  4. DIPHENHYDRAMINE HCL [Concomitant]
  5. RITONAVIR [Suspect]
     Indication: HIV INFECTION
     Dosage: 100MG QD ORAL
     Route: 048
     Dates: start: 20090810, end: 20120130
  6. VITAMIN D [Concomitant]
  7. ALBUTEROL [Concomitant]
  8. TRUVADA [Suspect]
     Indication: HIV INFECTION
     Dosage: 500 MG QD ORAL
     Route: 048
     Dates: start: 20090810, end: 20120130
  9. HYDROCODONE BITARTRATE AND ACETAMINOPHEN [Concomitant]
  10. ASPIRIN [Concomitant]
  11. FERROUS SULFATE TAB [Concomitant]

REACTIONS (7)
  - WEIGHT INCREASED [None]
  - OROPHARYNGEAL PAIN [None]
  - BLISTER [None]
  - LYMPHADENOPATHY [None]
  - DYSPHAGIA [None]
  - THERMAL BURN [None]
  - SENSORY DISTURBANCE [None]
